FAERS Safety Report 21675133 (Version 1)
Quarter: 2022Q4

REPORT INFORMATION
  Report Type: Spontaneous
  Country: US (occurrence: US)
  Receive Date: 20221202
  Receipt Date: 20221202
  Transmission Date: 20230112
  Serious: Yes (Hospitalization, Other)
  Sender: FDA-Public Use
  Company Number: US-SA-2022SA487641

PATIENT
  Age: 24 Year
  Sex: Female

DRUGS (1)
  1. SEVELAMER HYDROCHLORIDE [Suspect]
     Active Substance: SEVELAMER HYDROCHLORIDE
     Dosage: UNK

REACTIONS (7)
  - Colitis [Unknown]
  - Abdominal pain [Unknown]
  - Intestinal ulcer [Unknown]
  - Anaemia [Unknown]
  - Faeces discoloured [Unknown]
  - Enterococcal infection [Unknown]
  - Crystal deposit intestine [Unknown]
